FAERS Safety Report 22322886 (Version 3)
Quarter: 2023Q2

REPORT INFORMATION
  Report Type: Spontaneous
  Country: DE (occurrence: DE)
  Receive Date: 20230516
  Receipt Date: 20230524
  Transmission Date: 20230722
  Serious: Yes (Other)
  Sender: FDA-Public Use
  Company Number: DE-BEH-2023158629

PATIENT
  Age: 2 Year
  Sex: Female

DRUGS (5)
  1. HUMAN IMMUNOGLOBULIN G [Suspect]
     Active Substance: HUMAN IMMUNOGLOBULIN G
     Indication: Multisystem inflammatory syndrome in children
     Dosage: WITHIN 4 DAYS AFTER ADMISSION
     Route: 042
  2. HUMAN IMMUNOGLOBULIN G [Suspect]
     Active Substance: HUMAN IMMUNOGLOBULIN G
     Dosage: WITHIN 10 DAYS AFTER THE ONSET OF SYMPTOMS
     Route: 042
  3. PREDNISOLONE [Concomitant]
     Active Substance: PREDNISOLONE
     Dosage: 2 MILLIGRAM/KILOGRAM, QD
     Route: 065
  4. ASPIRIN [Concomitant]
     Active Substance: ASPIRIN
     Dosage: 5 MILLIGRAM/KILOGRAM, QD
     Route: 065
  5. UNSPECIFIED INGREDIENT [Concomitant]
     Active Substance: UNSPECIFIED INGREDIENT
     Dosage: 1 MILLIGRAM/KILOGRAM, QD
     Route: 058

REACTIONS (11)
  - Haemolytic anaemia [Recovered/Resolved]
  - Pallor [Recovered/Resolved]
  - Asthenia [Recovered/Resolved]
  - Gait disturbance [Recovered/Resolved]
  - Haemoglobin decreased [Recovered/Resolved]
  - Blood lactate dehydrogenase increased [Recovered/Resolved]
  - Haptoglobin abnormal [Recovered/Resolved]
  - Anti A antibody positive [Unknown]
  - Immunisation [Unknown]
  - No adverse event [Unknown]
  - Off label use [Unknown]
